FAERS Safety Report 9414900 (Version 3)
Quarter: 2013Q4

REPORT INFORMATION
  Report Type: Spontaneous
  Country: US (occurrence: US)
  Receive Date: 20130723
  Receipt Date: 20131002
  Transmission Date: 20140711
  Serious: Yes (Other)
  Sender: FDA-Public Use
  Company Number: US-PFIZER INC-2013215301

PATIENT
  Sex: Male

DRUGS (1)
  1. CHANTIX [Suspect]
     Dosage: UNK
     Dates: start: 20130716, end: 20130720

REACTIONS (6)
  - Hypersensitivity [Unknown]
  - Oral disorder [Unknown]
  - Throat lesion [Unknown]
  - Tongue blistering [Unknown]
  - Blister [Unknown]
  - Skin exfoliation [Unknown]
